FAERS Safety Report 6232221-X (Version None)
Quarter: 2009Q2

REPORT INFORMATION
  Report Type: 
  Country: None (occurrence: None)
  Receive Date: 20090615
  Receipt Date: 20090615
  Transmission Date: 20091009
  Serious: No
  Sender: FDA-Public Use
  Company Number: None

PATIENT
  Age: 31 Year
  Sex: Female
  Weight: 82.5547 kg

DRUGS (1)
  1. TOPAMAX [Suspect]
     Indication: HEADACHE
     Dosage: 100MG
     Dates: start: 20090518

REACTIONS (3)
  - DRUG INTOLERANCE [None]
  - HEADACHE [None]
  - PRODUCT SUBSTITUTION ISSUE [None]
